FAERS Safety Report 15643781 (Version 1)
Quarter: 2018Q4

REPORT INFORMATION
  Report Type: Report from Study
  Country: US (occurrence: US)
  Receive Date: 20181121
  Receipt Date: 20181121
  Transmission Date: 20190205
  Serious: Yes (Other)
  Sender: FDA-Public Use
  Company Number: US-BAYER-2018-207351

PATIENT
  Age: 54 Year
  Sex: Female

DRUGS (6)
  1. ZOLEDRONIC ACID [Concomitant]
     Active Substance: ZOLEDRONIC ACID
  2. SENNA [Concomitant]
     Active Substance: SENNA LEAF\SENNOSIDES\SENNOSIDES A AND B
  3. MORPHINE [Concomitant]
     Active Substance: MORPHINE
  4. STIVARGA [Suspect]
     Active Substance: REGORAFENIB
     Indication: COLON CANCER
     Dosage: 160 MG, QD (FOR 21 DAYS THEN 7 DAYS OFF)
     Route: 048
     Dates: start: 20181024, end: 20181029
  5. COLACE [Concomitant]
     Active Substance: DOCUSATE SODIUM
  6. LISINOPRIL. [Concomitant]
     Active Substance: LISINOPRIL

REACTIONS (5)
  - Pain [None]
  - Gait inability [None]
  - Burning sensation [None]
  - Palmar-plantar erythrodysaesthesia syndrome [Recovering/Resolving]
  - Blister [None]

NARRATIVE: CASE EVENT DATE: 20181027
